FAERS Safety Report 4291922-3 (Version None)
Quarter: 2004Q1

REPORT INFORMATION
  Report Type: 
  Country: None (occurrence: None)
  Receive Date: 20040210
  Receipt Date: 20040210
  Transmission Date: 20041129
  Serious: Yes (Other)
  Sender: FDA-Public Use
  Company Number: None

PATIENT
  Age: 77 Year
  Sex: Female

DRUGS (4)
  1. DOXIL [Suspect]
     Indication: CARCINOMA
     Dosage: 52 MG ONE TIME INTRAVENOUS
     Route: 042
     Dates: start: 20040102, end: 20040102
  2. ZOFRAN [Concomitant]
  3. DECADRON [Concomitant]
  4. SODIUM CHLORIDE 0.9% [Concomitant]

REACTIONS (2)
  - BACK PAIN [None]
  - FLUSHING [None]
